FAERS Safety Report 9474456 (Version 2)
Quarter: 2013Q3

REPORT INFORMATION
  Report Type: Spontaneous
  Country: IT (occurrence: IT)
  Receive Date: 20130823
  Receipt Date: 20130826
  Transmission Date: 20140515
  Serious: Yes (Other)
  Sender: FDA-Public Use
  Company Number: IT-PFIZER INC-2013244865

PATIENT
  Age: 32 Year
  Sex: Female

DRUGS (3)
  1. LYRICA [Suspect]
     Indication: SPONDYLOLISTHESIS
     Dosage: 50 MG, DAILY
     Route: 048
     Dates: start: 20130711, end: 20130714
  2. MISOFENAC [Concomitant]
     Dosage: UNK
  3. LANSOX [Concomitant]
     Dosage: UNK

REACTIONS (3)
  - Off label use [Unknown]
  - Anuria [Recovered/Resolved]
  - Constipation [Recovered/Resolved]
